FAERS Safety Report 5464023-6 (Version None)
Quarter: 2007Q3

REPORT INFORMATION
  Report Type: 
  Country: None (occurrence: None)
  Receive Date: 20070919
  Receipt Date: 20070904
  Transmission Date: 20080115
  Serious: Yes (Hospitalization, Other)
  Sender: FDA-Public Use
  Company Number: 2007US-09733

PATIENT
  Age: 71 Year
  Sex: Male

DRUGS (10)
  1. ISOPTIN SR [Suspect]
     Indication: ARRHYTHMIA
     Dosage: 80 MG, QD, ORAL
     Route: 048
     Dates: start: 20060418, end: 20070805
  2. WARFARIN SODIUM [Concomitant]
  3. ALFACALCIDOL UNKNOWN [Concomitant]
  4. AMLODIPINE [Concomitant]
  5. CARVEDILOL [Concomitant]
  6. ACETYLSALICYLIC ACID UNKNOWN [Concomitant]
  7. LANSOPRAZOLE UNKNOWN [Concomitant]
  8. SENNA ALEXANDRINA LEAF UNKNOWN [Concomitant]
  9. CALTAN [Concomitant]
  10. LICODAINE UNKNOWN [Concomitant]

REACTIONS (7)
  - CATAPLEXY [None]
  - DIALYSIS [None]
  - DIPLOPIA [None]
  - DRUG LEVEL INCREASED [None]
  - MUSCULAR WEAKNESS [None]
  - MYASTHENIC SYNDROME [None]
  - NEUROLOGICAL SYMPTOM [None]
